FAERS Safety Report 19928056 (Version 2)
Quarter: 2021Q4

REPORT INFORMATION
  Report Type: Spontaneous
  Country: JP (occurrence: JP)
  Receive Date: 20211007
  Receipt Date: 20211019
  Transmission Date: 20220304
  Serious: Yes (Hospitalization)
  Sender: FDA-Public Use
  Company Number: NVSJ2021JP014797

PATIENT
  Age: 80 Year
  Sex: Male

DRUGS (4)
  1. INDACATEROL [Suspect]
     Active Substance: INDACATEROL
     Indication: Chronic obstructive pulmonary disease
     Dosage: 150 UG
     Route: 055
  2. INDACATEROL [Suspect]
     Active Substance: INDACATEROL
     Dosage: 150 UG
     Route: 048
     Dates: start: 20211001, end: 20211001
  3. INDACATEROL [Suspect]
     Active Substance: INDACATEROL
     Dosage: 150 UG
     Route: 055
     Dates: start: 20211002
  4. OFEV [Concomitant]
     Active Substance: NINTEDANIB
     Indication: Product used for unknown indication
     Dosage: UNK
     Route: 048

REACTIONS (3)
  - Pneumothorax [Not Recovered/Not Resolved]
  - Concomitant disease aggravated [Not Recovered/Not Resolved]
  - Incorrect route of product administration [Recovered/Resolved]

NARRATIVE: CASE EVENT DATE: 20210916
